FAERS Safety Report 11088005 (Version 4)
Quarter: 2015Q4

REPORT INFORMATION
  Report Type: Report from Study
  Country: US (occurrence: US)
  Receive Date: 20150504
  Receipt Date: 20151030
  Transmission Date: 20160304
  Serious: Yes (Other)
  Sender: FDA-Public Use
  Company Number: PHEH2015US008104

PATIENT
  Age: 29 Year
  Sex: Female
  Weight: 96.62 kg

DRUGS (15)
  1. LODINE [Concomitant]
     Active Substance: ETODOLAC
     Indication: PAIN
     Dosage: 1 DF, PRN (TID)
     Route: 048
  2. METHOCARBAMOL. [Concomitant]
     Active Substance: METHOCARBAMOL
     Indication: PRODUCT USED FOR UNKNOWN INDICATION
     Dosage: 1 DF, BID
     Route: 048
  3. LIDODERM [Concomitant]
     Active Substance: LIDOCAINE
     Indication: PRODUCT USED FOR UNKNOWN INDICATION
     Dosage: 1 PATCH, QD
     Route: 061
  4. MEDROL [Concomitant]
     Active Substance: METHYLPREDNISOLONE
     Indication: PRODUCT USED FOR UNKNOWN INDICATION
     Dosage: 4 MG, QD
     Route: 048
  5. CARBAMAZEPINE. [Concomitant]
     Active Substance: CARBAMAZEPINE
     Dosage: 100 MG, BID
     Route: 048
  6. POTASSIUM CHLORIDE. [Concomitant]
     Active Substance: POTASSIUM CHLORIDE
     Indication: PRODUCT USED FOR UNKNOWN INDICATION
     Dosage: 1 DF, QD
     Route: 048
  7. NORCO [Concomitant]
     Active Substance: ACETAMINOPHEN\HYDROCODONE BITARTRATE
     Indication: EYE PAIN
  8. VITAMIN D3 [Concomitant]
     Active Substance: CHOLECALCIFEROL
     Indication: PRODUCT USED FOR UNKNOWN INDICATION
     Dosage: 1000 IU, QD
     Route: 048
  9. AUBAGIO [Concomitant]
     Active Substance: TERIFLUNOMIDE
     Indication: PRODUCT USED FOR UNKNOWN INDICATION
     Dosage: 14 MG, QD
     Route: 048
  10. CARBAMAZEPINE. [Concomitant]
     Active Substance: CARBAMAZEPINE
     Indication: PRODUCT USED FOR UNKNOWN INDICATION
     Dosage: 100 MG, WHILE AWAKE, START WITH 1 AT BED TIME FOR SEVEN DAYS
     Route: 048
  11. NORCO [Concomitant]
     Active Substance: ACETAMINOPHEN\HYDROCODONE BITARTRATE
     Indication: PAIN
     Dosage: 1 DF, PRN (EVERY SIX HOUR)
     Route: 048
  12. GILENYA [Suspect]
     Active Substance: FINGOLIMOD HYDROCHLORIDE
     Indication: RELAPSING-REMITTING MULTIPLE SCLEROSIS
     Dosage: 0.5 MG, QD
     Route: 048
     Dates: start: 20141203, end: 20150417
  13. NORCO [Concomitant]
     Active Substance: ACETAMINOPHEN\HYDROCODONE BITARTRATE
     Indication: HEADACHE
  14. TIZANIDINE. [Concomitant]
     Active Substance: TIZANIDINE
     Indication: PAIN IN EXTREMITY
     Route: 065
  15. TIZANIDINE. [Concomitant]
     Active Substance: TIZANIDINE
     Indication: MUSCULOSKELETAL STIFFNESS

REACTIONS (10)
  - Eye pain [Unknown]
  - Macular oedema [Unknown]
  - Diplopia [Unknown]
  - Vision blurred [Unknown]
  - Nystagmus [Unknown]
  - Visual impairment [Recovered/Resolved]
  - Sensory loss [Unknown]
  - Headache [Unknown]
  - Blindness [Unknown]
  - Visual field defect [Unknown]

NARRATIVE: CASE EVENT DATE: 20141208
